FAERS Safety Report 12113666 (Version 3)
Quarter: 2016Q3

REPORT INFORMATION
  Report Type: Report from Study
  Country: ZA (occurrence: ZA)
  Receive Date: 20160225
  Receipt Date: 20160704
  Transmission Date: 20161109
  Serious: Yes (Hospitalization, Disabling)
  Sender: FDA-Public Use
  Company Number: PHHY2016ZA022852

PATIENT
  Age: 59 Year
  Sex: Male

DRUGS (8)
  1. GILENYA [Suspect]
     Active Substance: FINGOLIMOD HYDROCHLORIDE
     Indication: RELAPSING-REMITTING MULTIPLE SCLEROSIS
     Dosage: 0.5 MG, UNK
     Route: 048
     Dates: start: 20150327, end: 201606
  2. CYMGEN [Concomitant]
     Active Substance: DULOXETINE HYDROCHLORIDE
     Indication: PAIN PROPHYLAXIS
     Dosage: 120 MG, UNK
     Route: 048
     Dates: start: 2015
  3. CEREBREX [Concomitant]
     Active Substance: CALCIUM GLYCEROPHOSPHATE\CALCIUM PHOSPHATE\GLUTAMIC ACID\VITAMIN B
     Indication: PROPHYLAXIS
  4. TRAMCET [Concomitant]
     Active Substance: ACETAMINOPHEN\TRAMADOL
     Indication: PRODUCT USED FOR UNKNOWN INDICATION
     Route: 065
  5. STILNOX [Concomitant]
     Active Substance: ZOLPIDEM TARTRATE
     Indication: PRODUCT USED FOR UNKNOWN INDICATION
     Route: 065
  6. CYMBALTA [Concomitant]
     Active Substance: DULOXETINE HYDROCHLORIDE
     Indication: PRODUCT USED FOR UNKNOWN INDICATION
     Route: 065
  7. CYMGEN [Concomitant]
     Active Substance: DULOXETINE HYDROCHLORIDE
     Indication: PROPHYLAXIS
  8. CEREBREX [Concomitant]
     Active Substance: CALCIUM GLYCEROPHOSPHATE\CALCIUM PHOSPHATE\GLUTAMIC ACID\VITAMIN B
     Indication: PAIN PROPHYLAXIS
     Dosage: 200 MG, UNK
     Route: 048
     Dates: start: 20160531

REACTIONS (7)
  - Sepsis [Unknown]
  - Pain [Recovered/Resolved with Sequelae]
  - Muscle spasms [Unknown]
  - Spinal muscular atrophy [Recovered/Resolved with Sequelae]
  - Liver function test increased [Unknown]
  - Procedural pain [Unknown]
  - Inguinal hernia [Unknown]

NARRATIVE: CASE EVENT DATE: 20160611
